FAERS Safety Report 25841784 (Version 1)
Quarter: 2025Q3

REPORT INFORMATION
  Report Type: Spontaneous
  Country: US (occurrence: US)
  Receive Date: 20250924
  Receipt Date: 20250924
  Transmission Date: 20251020
  Serious: No
  Sender: BIOMARIN
  Company Number: US-BIOMARINAP-US-2025-168731

PATIENT
  Age: 8 Year
  Sex: Male
  Weight: 24.94 kg

DRUGS (7)
  1. KUVAN [Suspect]
     Active Substance: SAPROPTERIN DIHYDROCHLORIDE
     Indication: Mental disorder
     Dosage: 2.5 MILLIGRAM, QD
  2. KUVAN [Suspect]
     Active Substance: SAPROPTERIN DIHYDROCHLORIDE
     Indication: Generalised anxiety disorder
     Dosage: 2.5 MILLIGRAM, BID
  3. KUVAN [Suspect]
     Active Substance: SAPROPTERIN DIHYDROCHLORIDE
     Indication: Attention deficit hyperactivity disorder
  4. KUVAN [Suspect]
     Active Substance: SAPROPTERIN DIHYDROCHLORIDE
     Indication: Major depression
  5. ARIPIPRAZOLE [Suspect]
     Active Substance: ARIPIPRAZOLE
     Indication: Antidepressant therapy
  6. ARIPIPRAZOLE [Suspect]
     Active Substance: ARIPIPRAZOLE
     Indication: Antipsychotic therapy
  7. ARIPIPRAZOLE [Suspect]
     Active Substance: ARIPIPRAZOLE
     Indication: Major depression

REACTIONS (4)
  - Drug interaction [Recovered/Resolved]
  - Anger [Recovered/Resolved]
  - Behaviour disorder [Recovered/Resolved]
  - Off label use [Unknown]
